FAERS Safety Report 12451405 (Version 1)
Quarter: 2016Q2

REPORT INFORMATION
  Report Type: Spontaneous
  Country: US (occurrence: None)
  Receive Date: 20160608
  Receipt Date: 20160608
  Transmission Date: 20160815
  Serious: Yes (Life-Threatening, Hospitalization)
  Sender: FDA-Public Use
  Company Number: None

PATIENT
  Age: 63 Year
  Sex: Female
  Weight: 129 kg

DRUGS (1)
  1. HARVONI [Suspect]
     Active Substance: LEDIPASVIR\SOFOSBUVIR
     Indication: CHRONIC HEPATITIS C
     Dosage: 1 TAB PO DAILY
     Route: 048
     Dates: start: 20151216, end: 20160601

REACTIONS (3)
  - Hemiplegia [None]
  - Cerebrovascular accident [None]
  - Amnesia [None]

NARRATIVE: CASE EVENT DATE: 20160601
